FAERS Safety Report 7311495-8 (Version None)
Quarter: 2011Q1

REPORT INFORMATION
  Report Type: 
  Country: None (occurrence: None)
  Receive Date: 20110224
  Receipt Date: 20110215
  Transmission Date: 20110831
  Serious: Yes (Other)
  Sender: FDA-Public Use
  Company Number: PHHY2010BR42913

PATIENT
  Sex: Female

DRUGS (3)
  1. TEGRETOL [Suspect]
     Dosage: 1 DF, BID(MORNING AND NIGHT)
  2. ERYTHROMYCIN [Concomitant]
     Dosage: UNK
  3. TEGRETOL-XR [Suspect]
     Dosage: 1 DF, BID (MORNING AND NIGHT)

REACTIONS (6)
  - ANAPHYLACTIC SHOCK [None]
  - HEMIPARESIS [None]
  - INCORRECT DOSE ADMINISTERED [None]
  - NAIL INFECTION [None]
  - DIPLOPIA [None]
  - PAIN [None]
